FAERS Safety Report 17895431 (Version 1)
Quarter: 2020Q2

REPORT INFORMATION
  Report Type: Spontaneous
  Country: US (occurrence: US)
  Receive Date: 20200615
  Receipt Date: 20200615
  Transmission Date: 20200714
  Serious: Yes (Life-Threatening, Hospitalization, Disabling)
  Sender: FDA-Public Use
  Company Number: None

PATIENT
  Age: 57 Month
  Sex: Female
  Weight: 65.25 kg

DRUGS (2)
  1. PROZAC [Concomitant]
     Active Substance: FLUOXETINE HYDROCHLORIDE
  2. YUTOPAR [Suspect]
     Active Substance: RITODRINE HYDROCHLORIDE
     Indication: PREMATURE LABOUR
     Dates: start: 19880704, end: 19880831

REACTIONS (7)
  - Self-medication [None]
  - Product use in unapproved therapeutic environment [None]
  - Emotional disorder [None]
  - Family stress [None]
  - Suicide attempt [None]
  - Quality of life decreased [None]
  - Insomnia [None]

NARRATIVE: CASE EVENT DATE: 19880923
